FAERS Safety Report 26186936 (Version 1)
Quarter: 2025Q4

REPORT INFORMATION
  Report Type: Spontaneous
  Country: US (occurrence: None)
  Receive Date: 20251222
  Receipt Date: 20251222
  Transmission Date: 20260117
  Serious: No
  Sender: Harrow Health
  Company Number: US-HARROW-HAR-2025-US-00876

PATIENT
  Age: 67 Year
  Sex: Male

DRUGS (2)
  1. VEVYE [Suspect]
     Active Substance: CYCLOSPORINE
     Route: 047
     Dates: end: 20250827
  2. REZDIFFRA [Concomitant]
     Active Substance: RESMETIROM

REACTIONS (2)
  - Drug interaction [Unknown]
  - Diarrhoea [Recovered/Resolved]
